FAERS Safety Report 10247216 (Version 1)
Quarter: 2014Q2

REPORT INFORMATION
  Report Type: Spontaneous
  Country: US (occurrence: US)
  Receive Date: 20140619
  Receipt Date: 20140619
  Transmission Date: 20141212
  Serious: Yes (Hospitalization)
  Sender: FDA-Public Use
  Company Number: US-GLAXOSMITHKLINE-A1076781A

PATIENT
  Sex: Male

DRUGS (2)
  1. LAMOTRIGINE [Suspect]
     Indication: CONVULSION
     Route: 048
  2. LEVETIRACETAM [Concomitant]

REACTIONS (3)
  - Convulsion [Recovering/Resolving]
  - Fall [Recovering/Resolving]
  - Drug ineffective [Recovering/Resolving]
